FAERS Safety Report 11186824 (Version 3)
Quarter: 2015Q2

REPORT INFORMATION
  Report Type: Spontaneous
  Country: US (occurrence: US)
  Receive Date: 20150614
  Receipt Date: 20150623
  Transmission Date: 20150821
  Serious: Yes (Hospitalization, Congenital Anomaly, Other)
  Sender: FDA-Public Use
  Company Number: US-APOTEX-2015AP008618

PATIENT

DRUGS (1)
  1. PAXIL [Suspect]
     Active Substance: PAROXETINE HYDROCHLORIDE
     Indication: DEPRESSION
     Route: 064

REACTIONS (7)
  - Gastrooesophageal reflux disease [Unknown]
  - Arnold-Chiari malformation [Unknown]
  - Foetal exposure during pregnancy [Unknown]
  - Developmental delay [Unknown]
  - Device malfunction [Unknown]
  - Congenital hydrocephalus [Unknown]
  - Microcephaly [Unknown]

NARRATIVE: CASE EVENT DATE: 20020203
